FAERS Safety Report 6251464-2 (Version None)
Quarter: 2009Q2

REPORT INFORMATION
  Report Type: 
  Country: None (occurrence: None)
  Receive Date: 20090630
  Receipt Date: 20090622
  Transmission Date: 20091009
  Serious: Yes (Hospitalization, Other)
  Sender: FDA-Public Use
  Company Number: PHHO2008US02254

PATIENT
  Sex: Male
  Weight: 10.36 kg

DRUGS (1)
  1. ELIDEL ASM+CRE [Suspect]
     Indication: DERMATITIS ATOPIC
     Dosage: UNK
     Route: 061
     Dates: start: 20041213, end: 20041216

REACTIONS (4)
  - DYSPNOEA [None]
  - HYPOXIA [None]
  - INTERCOSTAL RETRACTION [None]
  - PNEUMONIA [None]
